FAERS Safety Report 9299964 (Version 1)
Quarter: 2012Q4

REPORT INFORMATION
  Report Type: Spontaneous
  Country: MX (occurrence: None)
  Receive Date: 20121101
  Receipt Date: 20121101
  Transmission Date: 20130627
  Serious: Yes (Life-Threatening)
  Sender: FDA-Public Use
  Company Number: 12-2699

PATIENT
  Age: 14 Year
  Sex: Male

DRUGS (3)
  1. XEOMIN [Suspect]
     Indication: LEG SPASTICITY
     Dosage: (50 , 1 in 1 Total) Intramuscular
     Dates: start: 20120928, end: 20120928
  2. XEOMIN [Suspect]
     Indication: LEG SPASTICITY
     Dosage: (1 in 1 Total)
  3. XEOMIN [Suspect]
     Indication: LEG SPASTICITY
     Dosage: (1 in 1 Total) 4 months prior to 3rd Inj - 4 months prior to 3rd Inj

REACTIONS (7)
  - Cardiogenic shock [None]
  - Apnoea [None]
  - Pallor [None]
  - Hypoglycaemia [None]
  - Cardio-respiratory arrest [None]
  - Cardiopulmonary failure [None]
  - Hypersensitivity [None]
